FAERS Safety Report 14260559 (Version 3)
Quarter: 2018Q1

REPORT INFORMATION
  Report Type: Spontaneous
  Country: US (occurrence: US)
  Receive Date: 20171207
  Receipt Date: 20180105
  Transmission Date: 20180508
  Serious: Yes (Other)
  Sender: FDA-Public Use
  Company Number: US-009507513-1712USA002563

PATIENT
  Age: 70 Year
  Sex: Female
  Weight: 62 kg

DRUGS (4)
  1. KEYTRUDA [Suspect]
     Active Substance: PEMBROLIZUMAB
     Indication: ENDOMETRIAL CANCER METASTATIC
     Dosage: 200 MG, Q3W
     Route: 042
     Dates: start: 20171130, end: 20171130
  2. KEYTRUDA [Suspect]
     Active Substance: PEMBROLIZUMAB
     Dosage: 200 MG, Q3W
     Route: 042
     Dates: start: 20171220
  3. CARBOPLATIN (+) DOXORUBICIN [Concomitant]
  4. CARBOPLATIN (+) PACLITAXEL [Concomitant]

REACTIONS (5)
  - Product use in unapproved indication [Unknown]
  - Thrombocytopenia [Unknown]
  - Eye disorder [Unknown]
  - Anaphylactic reaction [Recovered/Resolved]
  - Lymphopenia [Unknown]

NARRATIVE: CASE EVENT DATE: 2017
